FAERS Safety Report 5812617-8 (Version None)
Quarter: 2008Q3

REPORT INFORMATION
  Report Type: 
  Country: None (occurrence: None)
  Receive Date: 20080711
  Receipt Date: 20080708
  Transmission Date: 20090109
  Serious: Yes (Hospitalization, Other)
  Sender: FDA-Public Use
  Company Number: 2008SP007306

PATIENT
  Age: 49 Year
  Sex: Male

DRUGS (6)
  1. REBETOL [Suspect]
     Indication: HEPATITIS
     Dosage: 1000 MG; QD; PO; 1000 MG; QD; PO
     Route: 048
     Dates: start: 20071015, end: 20080401
  2. REBETOL [Suspect]
     Indication: HEPATITIS
     Dosage: 1000 MG; QD; PO; 1000 MG; QD; PO
     Route: 048
     Dates: start: 20080501
  3. PEGASYS [Suspect]
     Indication: HEPATITIS C
     Dosage: 180 MCG; QW; 180 MCG; QW
     Dates: start: 20071015, end: 20080401
  4. PEGASYS [Suspect]
     Indication: HEPATITIS C
     Dosage: 180 MCG; QW; 180 MCG; QW
     Dates: start: 20080501
  5. INSULIN [Concomitant]
  6. PERCOCET [Concomitant]

REACTIONS (15)
  - ANOREXIA [None]
  - BLOOD GLUCOSE FLUCTUATION [None]
  - BLOOD GLUCOSE INCREASED [None]
  - CEREBROVASCULAR ACCIDENT [None]
  - CHOLECYSTECTOMY [None]
  - CHROMATURIA [None]
  - CONDITION AGGRAVATED [None]
  - DEPRESSION [None]
  - DIABETES MELLITUS [None]
  - HAEMATEMESIS [None]
  - HEADACHE [None]
  - HEPATIC STEATOSIS [None]
  - NEURALGIA [None]
  - NEUROPATHY PERIPHERAL [None]
  - VISION BLURRED [None]
